FAERS Safety Report 23569780 (Version 1)
Quarter: 2024Q1

REPORT INFORMATION
  Report Type: Report from Study
  Country: AR (occurrence: AR)
  Receive Date: 20240227
  Receipt Date: 20240227
  Transmission Date: 20240410
  Serious: Yes (Disabling)
  Sender: FDA-Public Use
  Company Number: AR-JNJFOC-20240249308

PATIENT
  Age: 48 Year
  Sex: Male
  Weight: 84 kg

DRUGS (1)
  1. SIMPONI [Suspect]
     Active Substance: GOLIMUMAB
     Indication: Rheumatoid arthritis
     Dosage: FREQUENCY TIME: MONTH?50.00 MG / 0.50 ML
     Route: 058
     Dates: start: 20210328

REACTIONS (3)
  - Rheumatoid arthritis [Unknown]
  - Device mechanical issue [Unknown]
  - Product dose omission issue [Unknown]
